FAERS Safety Report 21323663 (Version 1)
Quarter: 2022Q3

REPORT INFORMATION
  Report Type: Spontaneous
  Country: US (occurrence: US)
  Receive Date: 20220912
  Receipt Date: 20220912
  Transmission Date: 20221026
  Serious: No
  Sender: FDA-Public Use
  Company Number: US-LEADIANT BIOSCIENCES INC-2022STPI000019

PATIENT
  Sex: Female

DRUGS (1)
  1. MATULANE [Suspect]
     Active Substance: PROCARBAZINE HYDROCHLORIDE
     Indication: B-cell lymphoma stage III
     Dosage: 150 MILLIGRAM, DAILY ON DAYS 1-7 OF 21 DAYS
     Route: 048
     Dates: start: 20211227

REACTIONS (3)
  - Nausea [Unknown]
  - Diarrhoea [Unknown]
  - Alopecia [Unknown]
